FAERS Safety Report 20346730 (Version 1)
Quarter: 2022Q1

REPORT INFORMATION
  Report Type: Spontaneous
  Country: US (occurrence: US)
  Receive Date: 20220118
  Receipt Date: 20220118
  Transmission Date: 20220424
  Serious: Yes (Hospitalization)
  Sender: FDA-Public Use
  Company Number: US-CELGENE-USA-20220103765

PATIENT
  Age: 77 Year
  Sex: Male
  Weight: 93.9 kg

DRUGS (25)
  1. AZACITIDINE [Suspect]
     Active Substance: AZACITIDINE
     Indication: Myelodysplastic syndrome
     Dosage: 75 MILLIGRAM/SQ. METER
     Route: 041
     Dates: start: 20210805
  2. VENETOCLAX [Suspect]
     Active Substance: VENETOCLAX
     Indication: Myelodysplastic syndrome
     Route: 048
     Dates: start: 20210805
  3. AZELASTINE [Concomitant]
     Active Substance: AZELASTINE
     Indication: Multiple allergies
     Dosage: 137 MG
     Route: 045
     Dates: start: 20210820
  4. AZELASTINE [Concomitant]
     Active Substance: AZELASTINE
     Indication: Pneumonia
     Dosage: 137 MILLIEQUIVALENTS
     Route: 045
     Dates: start: 20210907, end: 20210914
  5. LEVAQUIN [Concomitant]
     Active Substance: LEVOFLOXACIN
     Indication: Infection prophylaxis
     Dosage: 500 MILLIGRAM
     Route: 048
     Dates: start: 20210805
  6. CLOBETASOL [Concomitant]
     Active Substance: CLOBETASOL
     Indication: Acute febrile neutrophilic dermatosis
     Dosage: 1 DOSAGE FORMS
     Route: 048
     Dates: start: 20210820
  7. ALLOPURINOL [Concomitant]
     Active Substance: ALLOPURINOL
     Indication: Blood uric acid abnormal
     Dosage: 300 MILLIGRAM
     Route: 048
     Dates: start: 20210820
  8. ALLOPURINOL [Concomitant]
     Active Substance: ALLOPURINOL
     Indication: Chondrocalcinosis pyrophosphate
     Dosage: 300 MILLIGRAM
     Route: 048
     Dates: start: 20210805
  9. ONDANSETRON [Concomitant]
     Active Substance: ONDANSETRON
     Indication: Prophylaxis of nausea and vomiting
     Dosage: 8 MILLIGRAM
     Route: 048
     Dates: start: 20210808
  10. ONDANSETRON [Concomitant]
     Active Substance: ONDANSETRON
     Indication: Chondrocalcinosis pyrophosphate
  11. NYSTATIN [Concomitant]
     Active Substance: NYSTATIN
     Indication: Infection prophylaxis
     Dosage: 100,000 UNITS/ML
     Route: 048
     Dates: start: 20210907, end: 20210914
  12. NYSTATIN [Concomitant]
     Active Substance: NYSTATIN
     Indication: Pneumonia
     Dosage: 100,000 UNITS/ML
     Route: 048
     Dates: start: 20210922
  13. CELECOXIB [Concomitant]
     Active Substance: CELECOXIB
     Indication: Acute febrile neutrophilic dermatosis
     Dosage: 400 MILLIGRAM
     Route: 048
     Dates: start: 20210805
  14. COLCHICINE [Concomitant]
     Active Substance: COLCHICINE
     Indication: Acute febrile neutrophilic dermatosis
     Dosage: .6 MILLIGRAM
     Route: 048
     Dates: start: 20210805
  15. ESCITALOPRAM OXALATE [Concomitant]
     Active Substance: ESCITALOPRAM OXALATE
     Indication: Anxiety
     Dosage: 20 MILLIGRAM
     Route: 048
     Dates: start: 20210805
  16. FAMOTIDINE [Concomitant]
     Active Substance: FAMOTIDINE
     Indication: Gastrooesophageal reflux disease
     Dosage: 20 MILLIGRAM
     Route: 048
     Dates: start: 20210805
  17. LEVOFLOXACIN [Concomitant]
     Active Substance: LEVOFLOXACIN
     Indication: Acute febrile neutrophilic dermatosis
     Dosage: 500 MILLIGRAM
     Route: 048
     Dates: start: 20210805
  18. LEVOFLOXACIN [Concomitant]
     Active Substance: LEVOFLOXACIN
     Indication: Pneumonia
     Dosage: 750 MILLIGRAM
     Route: 048
     Dates: start: 20210907, end: 20210914
  19. LISINOPRIL [Concomitant]
     Active Substance: LISINOPRIL
     Indication: Hypertension
     Dosage: 30 MILLIGRAM
     Route: 048
     Dates: start: 20210805
  20. LORATADINE [Concomitant]
     Active Substance: LORATADINE
     Indication: Multiple allergies
     Dosage: 10 MILLIGRAM
     Route: 048
     Dates: start: 20210805
  21. MAGNESIUM [Concomitant]
     Active Substance: MAGNESIUM
     Indication: Blood magnesium decreased
     Dosage: 71.5 MILLIGRAM
     Route: 048
     Dates: start: 20210820
  22. MESALAMINE [Concomitant]
     Active Substance: MESALAMINE
     Indication: Colitis ulcerative
     Dosage: 1.5 MILLIGRAM
     Route: 048
     Dates: start: 20210805
  23. PANTOPRAZOLE [Concomitant]
     Active Substance: PANTOPRAZOLE
     Indication: Gastrooesophageal reflux disease
     Dosage: 40 MILLIGRAM
     Route: 048
     Dates: start: 20210805
  24. PREDNISONE [Concomitant]
     Active Substance: PREDNISONE
     Indication: Chondrocalcinosis pyrophosphate
     Dosage: 20 MILLIGRAM
     Route: 048
     Dates: start: 20210805
  25. LORAZEPAM [Concomitant]
     Active Substance: LORAZEPAM
     Indication: Anxiety
     Dosage: 1.5 MILLIGRAM
     Route: 048
     Dates: start: 20210805

REACTIONS (1)
  - Urinary tract infection [Not Recovered/Not Resolved]

NARRATIVE: CASE EVENT DATE: 20211230
